FAERS Safety Report 16201035 (Version 1)
Quarter: 2019Q2

REPORT INFORMATION
  Report Type: Report from Study
  Country: HN (occurrence: HN)
  Receive Date: 20190416
  Receipt Date: 20190416
  Transmission Date: 20190711
  Serious: Yes (Other)
  Sender: FDA-Public Use
  Company Number: HN-SA-2019SA103881

PATIENT
  Age: 84 Year
  Sex: Male

DRUGS (1)
  1. HYDROCHLOROTHIAZIDE/IRBESARTAN [Suspect]
     Active Substance: HYDROCHLOROTHIAZIDE\IRBESARTAN
     Indication: HYPERTENSION
     Dosage: 1 DF (1 ORAL TABLET OF 300 MG OF IRBESARTAN + 25 MG OF HYDROCHLOROTHIAZIDE (COAPROVEL ? ) EVERY 24 H
     Route: 048
     Dates: start: 2006

REACTIONS (3)
  - Auditory disorder [Not Recovered/Not Resolved]
  - Dizziness [Not Recovered/Not Resolved]
  - Blindness [Not Recovered/Not Resolved]

NARRATIVE: CASE EVENT DATE: 2017
